FAERS Safety Report 6990404 (Version 12)
Quarter: 2013Q4

REPORT INFORMATION
  Report Type: Report from Study
  Country: JP (occurrence: JP)
  Receive Date: 20090508
  Receipt Date: 20131115
  Transmission Date: 20140711
  Serious: Yes (Death, Life-Threatening, Hospitalization, Other)
  Sender: FDA-Public Use
  Company Number: JP-BRISTOL-MYERS SQUIBB COMPANY-14542013

PATIENT
  Age: 68 Year
  Sex: Male

DRUGS (26)
  1. SPRYCEL (CML) TABS [Suspect]
     Indication: CHRONIC MYELOID LEUKAEMIA
     Dosage: 12MY-27OT09,50MG:2D,28OT09-4MR10,60MG,2D,5MR10-19MR10,120MG,1D.100MG*1DY28JN11012OT11,28OT11-6AR12
     Route: 048
     Dates: start: 20090212, end: 20100319
  2. ALBUMIN TANNATE [Suspect]
     Route: 048
     Dates: end: 20090417
  3. CYTARABINE [Concomitant]
     Dates: start: 20090107, end: 200902
  4. HYDREA [Concomitant]
     Indication: CHRONIC MYELOID LEUKAEMIA
     Dosage: 500MG*MG/WEEK,500MG/DAY.28JUL10-24AUG10,06OCT10-16NOV10,17NOV10-13DEC10,15DEC10-28DEC10.
     Route: 048
     Dates: start: 20090107
  5. SILODOSIN [Concomitant]
     Dosage: 17APR09,24JUN09
     Route: 048
     Dates: start: 20090624
  6. TAKEPRON [Concomitant]
     Indication: PROPHYLAXIS AGAINST GASTROINTESTINAL ULCER
     Dosage: TAKEPRON OD TAB
     Route: 048
     Dates: end: 20091028
  7. AMLODIPINE BESYLATE [Concomitant]
     Route: 048
     Dates: end: 20120406
  8. ALLOPURINOL [Concomitant]
     Dosage: STOP DT:06APR2012
     Route: 048
     Dates: end: 20090417
  9. ANTIBIOTIC [Concomitant]
     Indication: PROPHYLAXIS
     Route: 048
     Dates: start: 20090624
  10. POTASSIUM ASPARTATE [Concomitant]
     Dosage: POTASSIUM L-ASPARTATE
     Route: 048
     Dates: start: 20090228, end: 20090303
  11. CHLORPHENIRAMINE MALEATE [Concomitant]
     Dates: start: 20090214, end: 20090223
  12. LACTOMIN [Concomitant]
     Dates: start: 20090223
  13. FUROSEMIDE [Concomitant]
     Route: 042
     Dates: start: 20090214, end: 20090314
  14. GLUCOSE + ELECTROLYTES [Concomitant]
     Dosage: SOLUTION
     Dates: start: 20090216, end: 20090223
  15. SODIUM BICARBONATE [Concomitant]
     Dates: start: 20090216, end: 20090223
  16. MUCOSTA [Concomitant]
     Indication: PROPHYLAXIS AGAINST GASTROINTESTINAL ULCER
     Dosage: 28FEB09-03MAR09?29OCT09-ONG
     Route: 048
     Dates: start: 20090228, end: 20120406
  17. GAMOFA [Concomitant]
     Indication: PROPHYLAXIS AGAINST GASTROINTESTINAL ULCER
     Dosage: GAMOFA D TAB
     Route: 048
     Dates: start: 20091029, end: 20120406
  18. NOVAMIN [Concomitant]
     Indication: PROPHYLAXIS OF NAUSEA AND VOMITING
     Route: 048
     Dates: start: 20110209, end: 20120406
  19. ENTERONON-R [Concomitant]
     Route: 048
     Dates: end: 20090602
  20. OMEPRAL [Concomitant]
     Route: 048
     Dates: start: 20120406, end: 20120412
  21. MORPHINE HCL [Concomitant]
     Route: 042
     Dates: start: 20120406, end: 20120412
  22. MORPHINE HCL [Concomitant]
     Route: 042
     Dates: start: 20120406, end: 20120412
  23. TRAVELMIN [Concomitant]
     Indication: NAUSEA
     Route: 048
     Dates: start: 20110216, end: 20120406
  24. ZYRTEC [Concomitant]
     Indication: RASH
     Route: 048
     Dates: end: 20120216
  25. CYMERIN [Concomitant]
     Route: 042
     Dates: start: 20120403, end: 20120403
  26. GASMOTIN [Concomitant]
     Indication: ILEUS
     Route: 048
     Dates: start: 20120304

REACTIONS (20)
  - Malignant neoplasm progression [Fatal]
  - Gastrointestinal haemorrhage [Fatal]
  - Haemoptysis [Fatal]
  - Platelet count decreased [Fatal]
  - Hepatic function abnormal [Fatal]
  - Disseminated intravascular coagulation [Recovering/Resolving]
  - Tumour lysis syndrome [Unknown]
  - Ileus paralytic [Recovering/Resolving]
  - Gastroenteritis [Recovering/Resolving]
  - Sepsis [Recovering/Resolving]
  - Peripheral sensory neuropathy [Recovered/Resolved]
  - Blood creatinine increased [Recovered/Resolved]
  - Generalised oedema [Recovered/Resolved]
  - White blood cell count decreased [Recovered/Resolved]
  - Neutrophil count decreased [Not Recovered/Not Resolved]
  - Anaemia [Recovered/Resolved]
  - Pleural effusion [Recovered/Resolved]
  - Blood alkaline phosphatase increased [Not Recovered/Not Resolved]
  - Hyperuricaemia [Recovered/Resolved]
  - Rhinorrhoea [Recovered/Resolved]
